FAERS Safety Report 20173712 (Version 1)
Quarter: 2021Q4

REPORT INFORMATION
  Report Type: Spontaneous
  Country: BR (occurrence: BR)
  Receive Date: 20211212
  Receipt Date: 20211212
  Transmission Date: 20220304
  Serious: Yes (Other)
  Sender: FDA-Public Use
  Company Number: BR-ORGANON-O2112BRA000552

PATIENT
  Sex: Female
  Weight: 67 kg

DRUGS (9)
  1. VYTORIN [Suspect]
     Active Substance: EZETIMIBE\SIMVASTATIN
     Indication: Blood cholesterol
     Dosage: 10/20 (NO UNITS PROVIDED)
     Route: 048
     Dates: start: 2013
  2. LOSARTAN POTASSIUM [Suspect]
     Active Substance: LOSARTAN POTASSIUM
     Dosage: UNK
     Route: 048
     Dates: start: 2011
  3. JANUMET [Suspect]
     Active Substance: METFORMIN HYDROCHLORIDE\SITAGLIPTIN PHOSPHATE
     Dosage: 50/850 (NO UNITS PROVIDED)
  4. INSULIN GLARGINE [Concomitant]
     Active Substance: INSULIN GLARGINE
     Dosage: UNK
     Dates: start: 2011
  5. SELOKEEN [METOPROLOL SUCCINATE] [Concomitant]
     Indication: Blood pressure abnormal
     Dosage: UNK
     Dates: start: 2010
  6. SYNTHROID [Concomitant]
     Active Substance: LEVOTHYROXINE SODIUM
     Indication: Thyroid disorder
     Dosage: UNK
     Dates: start: 2010
  7. ASPIRIN [Concomitant]
     Active Substance: ASPIRIN
     Indication: Myocardial infarction
     Dosage: UNK
     Dates: start: 2018
  8. ASPIRIN [Concomitant]
     Active Substance: ASPIRIN
     Indication: Cerebrovascular accident
  9. AMLODIPINE [Concomitant]
     Active Substance: AMLODIPINE BESYLATE
     Indication: Cardiac disorder
     Dosage: UNK
     Dates: start: 2014

REACTIONS (2)
  - Arteriosclerosis [Unknown]
  - Blood triglycerides abnormal [Unknown]
